FAERS Safety Report 6032265-7 (Version None)
Quarter: 2008Q4

REPORT INFORMATION
  Report Type: 
  Country: None (occurrence: None)
  Receive Date: 20081229
  Receipt Date: 20081217
  Transmission Date: 20090506
  Serious: Yes (Other)
  Sender: FDA-Public Use
  Company Number: AEUSA200800296

PATIENT
  Age: 61 Year
  Sex: Male

DRUGS (1)
  1. IGIV          (MAUFACTURER UNKNOWN) [Suspect]
     Indication: BLOOD IMMUNOGLOBULIN G DECREASED
     Dosage: 300 MG/KG;IV
     Route: 042

REACTIONS (1)
  - TRANSFUSION-RELATED ACUTE LUNG INJURY [None]
